FAERS Safety Report 17040554 (Version 1)
Quarter: 2019Q4

REPORT INFORMATION
  Report Type: Spontaneous
  Country: US (occurrence: US)
  Receive Date: 20191024
  Receipt Date: 20191024
  Transmission Date: 20200122
  Serious: Yes (Death, Life-Threatening, Hospitalization)
  Sender: FDA-Public Use
  Company Number: None

PATIENT

DRUGS (2)
  1. PROPOFOL 200 MG/20ML VIAL [Suspect]
     Active Substance: PROPOFOL
     Indication: SEDATION
     Dates: start: 20190913, end: 20190913
  2. LIDOCAINE 2% [Concomitant]
     Active Substance: LIDOCAINE
     Dates: start: 20190913, end: 20190913

REACTIONS (1)
  - Sepsis [None]

NARRATIVE: CASE EVENT DATE: 20190913
